FAERS Safety Report 4716269-X (Version None)
Quarter: 2005Q2

REPORT INFORMATION
  Report Type: 
  Country: None (occurrence: None)
  Receive Date: 20050630
  Receipt Date: 20040103
  Transmission Date: 20051028
  Serious: Yes (Hospitalization, Other)
  Sender: FDA-Public Use
  Company Number: US_010668335

PATIENT
  Age: 79 Year
  Sex: Female
  Weight: 64 kg

DRUGS (8)
  1. HUMALOG MIX 75/25 [Suspect]
     Dates: start: 20000101, end: 20020101
  2. HUMULIN 70/30 [Suspect]
     Indication: DIABETES MELLITUS
     Dosage: 62 U/DAY
     Dates: start: 20010614
  3. HUMULIN R [Suspect]
     Dates: start: 20040326
  4. HUMULIN N [Suspect]
  5. NITRO PATCH (GLYCERYL TRINITRATE) [Concomitant]
  6. NITROTAB (GLYCERYL TRINITRATE) [Concomitant]
  7. GLUCOPHAGE [Concomitant]
  8. INSULIN ASPART [Concomitant]

REACTIONS (9)
  - BLOOD GLUCOSE DECREASED [None]
  - BLOOD GLUCOSE INCREASED [None]
  - CARDIAC DISORDER [None]
  - DRUG INEFFECTIVE [None]
  - LOSS OF CONSCIOUSNESS [None]
  - PRURITUS [None]
  - STENT PLACEMENT [None]
  - TREMOR [None]
  - VISUAL ACUITY REDUCED [None]
